FAERS Safety Report 5201282-9 (Version None)
Quarter: 2007Q1

REPORT INFORMATION
  Report Type: 
  Country: None (occurrence: None)
  Receive Date: 20070104
  Receipt Date: 20061228
  Transmission Date: 20070707
  Serious: Yes (Death)
  Sender: FDA-Public Use
  Company Number: 2006-152415-NL

PATIENT
  Age: 61 Year

DRUGS (3)
  1. MIRTAZAPINE [Suspect]
  2. QUETIAPINE FUMARATE [Suspect]
  3. OLANZAPINE [Suspect]

REACTIONS (1)
  - COMPLETED SUICIDE [None]
